FAERS Safety Report 8431418-8 (Version None)
Quarter: 2012Q2

REPORT INFORMATION
  Report Type: 
  Country: None (occurrence: None)
  Receive Date: 20120605
  Receipt Date: 20120521
  Transmission Date: 20120825
  Serious: Yes (Death, Life-Threatening, Other)
  Sender: FDA-Public Use
  Company Number: JP-2012-15230

PATIENT
  Age: 67 Year
  Sex: Male

DRUGS (9)
  1. ANTIBIOTIC PREPARATIONS [Concomitant]
  2. ALDACTONE [Concomitant]
  3. LASIX [Concomitant]
  4. OMEPRAZOLE [Suspect]
     Dosage: , INTRAVENOUS
     Route: 042
     Dates: start: 20120520
  5. ANTIBIOTIC PREPARATIONS [Concomitant]
  6. HANP (CARPERITIDE) [Concomitant]
  7. SAMSCA [Suspect]
     Indication: CARDIAC FAILURE
     Dosage: 15 MG MILLIGRAM(S), QD, ORAL
     Route: 048
     Dates: start: 20120511, end: 20120513
  8. INSULIN (INSULIN) INJECTION [Suspect]
     Dosage: , INTRAVENOUS
     Route: 042
     Dates: start: 20120520
  9. BLOOD SUBSTITUTES [Concomitant]

REACTIONS (9)
  - HYPERNATRAEMIA [None]
  - PYREXIA [None]
  - GENERALISED ERYTHEMA [None]
  - BLOOD PRESSURE DECREASED [None]
  - DEMYELINATION [None]
  - ANAPHYLACTIC SHOCK [None]
  - DEPRESSED LEVEL OF CONSCIOUSNESS [None]
  - DISSEMINATED INTRAVASCULAR COAGULATION [None]
  - PRODUCTIVE COUGH [None]
